FAERS Safety Report 8161445-X (Version None)
Quarter: 2012Q1

REPORT INFORMATION
  Report Type: 
  Country: None (occurrence: None)
  Receive Date: 20120222
  Receipt Date: 20120222
  Transmission Date: 20120608
  Serious: Yes (Life-Threatening, Hospitalization)
  Sender: FDA-Public Use
  Company Number: None

PATIENT
  Sex: Male
  Weight: 51.7 kg

DRUGS (2)
  1. XELODA [Suspect]
     Indication: RECTAL CANCER
     Dosage: XELODA 500 MG 3 TABS DAILY PO
     Route: 048
     Dates: start: 20111215, end: 20111224
  2. XELODA [Suspect]
     Indication: RECTAL CANCER
     Dosage: XELODA 150 MG 2 TABS DAILY PO
     Route: 048
     Dates: start: 20111215, end: 20111224

REACTIONS (1)
  - CONVULSION [None]
